FAERS Safety Report 9103143 (Version 1)
Quarter: 2013Q1

REPORT INFORMATION
  Report Type: Spontaneous
  Country: PL (occurrence: PL)
  Receive Date: 20130219
  Receipt Date: 20130219
  Transmission Date: 20140127
  Serious: Yes (Hospitalization)
  Sender: FDA-Public Use
  Company Number: PHHY2013PL015836

PATIENT
  Sex: Female

DRUGS (2)
  1. MIACALCIC [Suspect]
     Indication: OSTEOPOROSIS
     Dosage: UNK UKN, UNK
     Route: 058
     Dates: start: 1993, end: 1997
  2. MIACALCIC [Suspect]
     Indication: OSTEOPOROSIS
     Dosage: UNK UKN, UNK
     Dates: start: 1993, end: 1997

REACTIONS (3)
  - Osteosarcoma [Recovering/Resolving]
  - Myositis [Recovered/Resolved]
  - Monoparesis [Recovered/Resolved]
